FAERS Safety Report 9860277 (Version 1)
Quarter: 2014Q1

REPORT INFORMATION
  Report Type: Spontaneous
  Country: US (occurrence: US)
  Receive Date: 20140201
  Receipt Date: 20140201
  Transmission Date: 20141002
  Serious: No
  Sender: FDA-Public Use
  Company Number: US-B.I. PHARMACEUTICALS,INC./RIDGEFIELD-2014-BI-03535BP

PATIENT
  Age: 62 Year
  Sex: Female
  Weight: 126 kg

DRUGS (6)
  1. SPIRIVA [Suspect]
     Indication: CHRONIC OBSTRUCTIVE PULMONARY DISEASE
     Dosage: 18 MCG
     Route: 055
  2. LEVOTHYROXINE [Concomitant]
     Route: 048
  3. PAXIL [Concomitant]
     Route: 048
  4. LISINOPRIL [Concomitant]
     Route: 048
  5. DULARA [Concomitant]
     Route: 055
  6. PROAIR [Concomitant]
     Route: 055

REACTIONS (3)
  - Vomiting [Recovered/Resolved]
  - Synovial cyst [Not Recovered/Not Resolved]
  - Weight decreased [Not Recovered/Not Resolved]
